FAERS Safety Report 14265518 (Version 1)
Quarter: 2017Q4

REPORT INFORMATION
  Report Type: Spontaneous
  Country: US (occurrence: US)
  Receive Date: 20171208
  Receipt Date: 20171208
  Transmission Date: 20180321
  Serious: Yes (Life-Threatening)
  Sender: FDA-Public Use
  Company Number: US-EPI_HEALTH-USA-POI1055201700001

PATIENT
  Age: 77 Year
  Sex: Female

DRUGS (2)
  1. BENSAL HP [Suspect]
     Active Substance: SALICYLIC ACID
     Indication: PRURITUS
     Route: 061
     Dates: start: 20171107, end: 20171107
  2. UNKNOWN TOPICAL OINTMENT [Suspect]
     Active Substance: UNSPECIFIED INGREDIENT

REACTIONS (3)
  - Drug hypersensitivity [Recovered/Resolved]
  - Throat tightness [Recovered/Resolved]
  - Pruritus generalised [Recovered/Resolved]

NARRATIVE: CASE EVENT DATE: 20171107
